FAERS Safety Report 5779364-2 (Version None)
Quarter: 2008Q2

REPORT INFORMATION
  Report Type: 
  Country: None (occurrence: None)
  Receive Date: 20080601
  Receipt Date: 20080126
  Transmission Date: 20081010
  Serious: No
  Sender: FDA-Public Use
  Company Number: US200801001133

PATIENT
  Age: 71 Year
  Sex: Male
  Weight: 103.4 kg

DRUGS (8)
  1. BYETTA [Suspect]
     Indication: INSULIN-REQUIRING TYPE 2 DIABETES MELLITUS
     Dosage: 5 UG, DAILY (1/D), SUBCUTANEOUS
     Route: 058
     Dates: start: 20080102
  2. LANTUS [Concomitant]
  3. DRUG USED IN DIABETES [Concomitant]
  4. TOPROL-XL [Concomitant]
  5. ALTACE [Concomitant]
  6. LIPITOR [Concomitant]
  7. HYDROCHLOROTHIAZIDE [Concomitant]
  8. ASPIRIN [Concomitant]

REACTIONS (4)
  - BLOOD GLUCOSE DECREASED [None]
  - BLOOD GLUCOSE INCREASED [None]
  - DECREASED APPETITE [None]
  - DRUG INEFFECTIVE [None]
